FAERS Safety Report 24964547 (Version 2)
Quarter: 2025Q1

REPORT INFORMATION
  Report Type: Spontaneous
  Country: US (occurrence: US)
  Receive Date: 20250213
  Receipt Date: 20250311
  Transmission Date: 20250409
  Serious: Yes (Disabling, Other)
  Sender: ALVOGEN
  Company Number: US-ALVOGEN-2025096228

PATIENT
  Sex: Female

DRUGS (2)
  1. FENTANYL [Suspect]
     Active Substance: FENTANYL
     Indication: Product used for unknown indication
     Route: 062
  2. FENTANYL [Suspect]
     Active Substance: FENTANYL
     Indication: Product used for unknown indication
     Route: 062

REACTIONS (5)
  - Spinal fracture [Unknown]
  - Loss of personal independence in daily activities [Unknown]
  - Pain [Unknown]
  - Device adhesion issue [Unknown]
  - Device malfunction [Unknown]
